FAERS Safety Report 8549394-6 (Version None)
Quarter: 2012Q3

REPORT INFORMATION
  Report Type: 
  Country: None (occurrence: None)
  Receive Date: 20120730
  Receipt Date: 20120717
  Transmission Date: 20120928
  Serious: Yes (Death, Other)
  Sender: FDA-Public Use
  Company Number: ES-CELGENEUS-144-20785-09042043

PATIENT

DRUGS (3)
  1. BORTEZOMIB [Suspect]
     Indication: MULTIPLE MYELOMA
     Dosage: 1.3MG/M2 ON DAYS 1,4,8 AND 11 Q 3 WEEKS
     Route: 065
  2. THALOMID [Suspect]
     Indication: MULTIPLE MYELOMA
     Dosage: 200MG DAILY (ESCALATING DOSES IN THE FIRST CYCLE)
     Route: 048
  3. DEXAMETHASONE [Suspect]
     Indication: MULTIPLE MYELOMA
     Dosage: 40MG ON DAYS 1-4 AND 9-12 AT 4-WEEK INTERVALS
     Route: 048

REACTIONS (12)
  - NEUTROPENIA [None]
  - MULTIPLE MYELOMA [None]
  - DEATH [None]
  - TOXICITY TO VARIOUS AGENTS [None]
  - NEUROPATHY PERIPHERAL [None]
  - HERPES ZOSTER [None]
  - COLON CANCER [None]
  - PULMONARY EMBOLISM [None]
  - GASTROINTESTINAL DISORDER [None]
  - DEEP VEIN THROMBOSIS [None]
  - THROMBOCYTOPENIA [None]
  - INFECTION [None]
